FAERS Safety Report 5964412-7 (Version None)
Quarter: 2008Q4

REPORT INFORMATION
  Report Type: 
  Country: None (occurrence: None)
  Receive Date: 20081124
  Receipt Date: 20081112
  Transmission Date: 20090506
  Serious: Yes (Death)
  Sender: FDA-Public Use
  Company Number: BR-PFIZER INC-2008097280

PATIENT
  Sex: Female

DRUGS (1)
  1. ZYVOX [Suspect]
     Dates: start: 20080101

REACTIONS (2)
  - DEATH [None]
  - DIARRHOEA [None]
